FAERS Safety Report 10909656 (Version 1)
Quarter: 2015Q1

REPORT INFORMATION
  Report Type: Spontaneous
  Country: US (occurrence: US)
  Receive Date: 20150312
  Receipt Date: 20150312
  Transmission Date: 20150721
  Serious: No
  Sender: FDA-Public Use
  Company Number: US-SA-2014SA047393

PATIENT
  Age: 59 Year
  Sex: Female
  Weight: 56 kg

DRUGS (1)
  1. NASACORT ALLERGY 24HR [Suspect]
     Active Substance: TRIAMCINOLONE ACETONIDE
     Indication: MULTIPLE ALLERGIES
     Dosage: 1ST DAY SHE TOOK 2 SPRAYS IN EACH NOSTRIL DAILY AND THEN 2ND DAY 1 SPRAY IN EACH NOSTRIL
     Route: 065
     Dates: start: 20140412, end: 20140413

REACTIONS (5)
  - Discomfort [Not Recovered/Not Resolved]
  - Urticaria [Recovered/Resolved]
  - Scratch [Not Recovered/Not Resolved]
  - Nausea [Not Recovered/Not Resolved]
  - Pruritus [Recovered/Resolved]
